FAERS Safety Report 16396839 (Version 2)
Quarter: 2019Q2

REPORT INFORMATION
  Report Type: Spontaneous
  Country: PL (occurrence: PL)
  Receive Date: 20190606
  Receipt Date: 20190612
  Transmission Date: 20190711
  Serious: Yes (Other)
  Sender: FDA-Public Use
  Company Number: PL-JNJFOC-20190540658

PATIENT
  Age: 65 Year
  Sex: Female

DRUGS (29)
  1. METAMIZOL SODIUM [Suspect]
     Active Substance: METAMIZOL SODIUM
     Indication: PAIN
     Route: 065
  2. METAMIZOL SODIUM [Suspect]
     Active Substance: METAMIZOL SODIUM
     Indication: ARTHRALGIA
     Route: 065
  3. METAMIZOL SODIUM [Suspect]
     Active Substance: METAMIZOL SODIUM
     Indication: BACK PAIN
     Route: 065
  4. DICLOFENAC [Suspect]
     Active Substance: DICLOFENAC
     Indication: PAIN
     Dosage: UNK, ONCE A WEEK
     Route: 061
  5. PARACETAMOL [Suspect]
     Active Substance: ACETAMINOPHEN
     Indication: PAIN
     Route: 065
  6. METAMIZOL SODIUM [Suspect]
     Active Substance: METAMIZOL SODIUM
     Indication: BACK PAIN
     Route: 065
  7. DICLOFENAC [Suspect]
     Active Substance: DICLOFENAC
     Indication: BACK PAIN
     Dosage: UNK, ONCE A WEEK
     Route: 061
  8. DICLOFENAC [Suspect]
     Active Substance: DICLOFENAC
     Indication: ARTHRALGIA
     Route: 061
  9. DICLOFENAC [Suspect]
     Active Substance: DICLOFENAC
     Indication: BACK PAIN
     Route: 061
  10. TRAMADOL HYDROCHLORIDE. [Suspect]
     Active Substance: TRAMADOL HYDROCHLORIDE
     Indication: PAIN
     Route: 065
  11. TRAMADOL HYDROCHLORIDE. [Suspect]
     Active Substance: TRAMADOL HYDROCHLORIDE
     Indication: PAIN
     Route: 065
  12. DICLOFENAC [Suspect]
     Active Substance: DICLOFENAC
     Indication: ARTHRALGIA
     Route: 061
  13. METAMIZOL SODIUM [Suspect]
     Active Substance: METAMIZOL SODIUM
     Indication: ARTHRALGIA
     Route: 065
  14. DICLOFENAC [Suspect]
     Active Substance: DICLOFENAC
     Indication: PAIN
     Route: 061
  15. TRAMADOL HYDROCHLORIDE. [Suspect]
     Active Substance: TRAMADOL HYDROCHLORIDE
     Indication: PAIN
     Dosage: 100 MILLIGRAM, BID
     Route: 065
  16. METAMIZOL SODIUM [Suspect]
     Active Substance: METAMIZOL SODIUM
     Indication: PAIN
     Route: 065
  17. IBUPROFEN. [Suspect]
     Active Substance: IBUPROFEN
     Indication: BACK PAIN
     Route: 065
  18. IBUPROFEN. [Suspect]
     Active Substance: IBUPROFEN
     Indication: ARTHRALGIA
     Route: 065
  19. METAMIZOL SODIUM [Suspect]
     Active Substance: METAMIZOL SODIUM
     Indication: BACK PAIN
     Dosage: 50 MILLIGRAM, UP TO 3 TIMES PER DAY
     Route: 065
  20. DICLOFENAC [Suspect]
     Active Substance: DICLOFENAC
     Indication: BACK PAIN
     Route: 061
  21. PARACETAMOL [Suspect]
     Active Substance: ACETAMINOPHEN
     Route: 065
  22. METAMIZOL SODIUM [Suspect]
     Active Substance: METAMIZOL SODIUM
     Indication: PAIN
     Dosage: 50 MILLIGRAM, UP TO 3 TIMES PER DAY
     Route: 065
  23. METAMIZOL SODIUM [Suspect]
     Active Substance: METAMIZOL SODIUM
     Indication: ARTHRALGIA
     Dosage: 50 MILLIGRAM, UP TO 3 TIMES PER DAY
     Route: 065
  24. DICLOFENAC [Suspect]
     Active Substance: DICLOFENAC
     Indication: PAIN
     Dosage: 75 MG, APPLIED FOR 12 HOURS
     Route: 061
  25. DICLOFENAC [Suspect]
     Active Substance: DICLOFENAC
     Indication: ARTHRALGIA
     Dosage: UNK, ONCE A WEEK
     Route: 061
  26. DICLOFENAC [Suspect]
     Active Substance: DICLOFENAC
     Indication: PAIN
     Route: 061
  27. IBUPROFEN. [Suspect]
     Active Substance: IBUPROFEN
     Indication: PAIN
     Route: 065
  28. DICLOFENAC [Suspect]
     Active Substance: DICLOFENAC
     Indication: ARTHRALGIA
     Dosage: 75 MG, APPLIED FOR 12 HOURS
     Route: 061
  29. DICLOFENAC [Suspect]
     Active Substance: DICLOFENAC
     Indication: BACK PAIN
     Dosage: 75 MG, APPLIED FOR 12 HOURS
     Route: 061

REACTIONS (14)
  - Dyspepsia [Unknown]
  - Nausea [Recovered/Resolved]
  - Oedema peripheral [Unknown]
  - Abdominal pain upper [Unknown]
  - Osteoarthritis [Unknown]
  - Dry mouth [Recovered/Resolved]
  - Bone density decreased [Unknown]
  - Back pain [Recovering/Resolving]
  - Muscle tone disorder [Unknown]
  - Intervertebral disc disorder [Unknown]
  - Palpitations [Unknown]
  - Spinal cord compression [Unknown]
  - Abdominal pain [Recovering/Resolving]
  - Arthropathy [Unknown]
